FAERS Safety Report 5898165-8 (Version None)
Quarter: 2008Q3

REPORT INFORMATION
  Report Type: 
  Country: None (occurrence: None)
  Receive Date: 20080925
  Receipt Date: 20080919
  Transmission Date: 20090109
  Serious: Yes (Death)
  Sender: FDA-Public Use
  Company Number: US-MERCK-0809USA03772

PATIENT
  Age: 84 Year
  Sex: Male

DRUGS (1)
  1. CANCIDAS [Suspect]
     Indication: FEBRILE NEUTROPENIA
     Route: 042

REACTIONS (3)
  - DRUG INEFFECTIVE [None]
  - FUNGAEMIA [None]
  - LEUKAEMIA [None]
